FAERS Safety Report 4518358-1 (Version None)
Quarter: 2004Q4

REPORT INFORMATION
  Report Type: 
  Country: None (occurrence: None)
  Receive Date: 20041202
  Receipt Date: 20041118
  Transmission Date: 20050328
  Serious: Yes (Hospitalization)
  Sender: FDA-Public Use
  Company Number: 2004-BP-12098BP

PATIENT
  Age: 52 Year
  Sex: Male

DRUGS (4)
  1. MOBIC [Suspect]
     Indication: BACK PAIN
     Dosage: 15 MG (7.5 MG, BID), PO
     Route: 048
     Dates: start: 20041117, end: 20041118
  2. NORVASC [Concomitant]
  3. DIOVAN [Concomitant]
  4. CELEXA [Concomitant]

REACTIONS (3)
  - DIARRHOEA HAEMORRHAGIC [None]
  - NAUSEA [None]
  - VOMITING [None]
